FAERS Safety Report 7690711-7 (Version None)
Quarter: 2011Q3

REPORT INFORMATION
  Report Type: 
  Country: None (occurrence: None)
  Receive Date: 20110817
  Receipt Date: 20110817
  Transmission Date: 20111222
  Serious: Yes (Hospitalization)
  Sender: FDA-Public Use
  Company Number: None

PATIENT
  Age: 87 Year
  Sex: Female

DRUGS (13)
  1. I-CAPS [Concomitant]
  2. ATENOLOL [Concomitant]
  3. SYNTHROID [Concomitant]
  4. CELEBREX [Concomitant]
  5. LYRICA [Concomitant]
  6. MULTI-VITAMINS [Concomitant]
  7. RANIBIZUMAB, LUCENTIS, CHUFAB V2 [Suspect]
     Indication: CHOROIDAL NEOVASCULARISATION
     Dosage: 2.0 MG INTRAVITREAL INJ
     Dates: start: 20110506
  8. NORVASC [Concomitant]
  9. ARTIFICIAL TEARS [Concomitant]
  10. SEREX [Concomitant]
  11. LEXAPRO [Concomitant]
  12. LASIX [Concomitant]
  13. RANIBIZUMAB, LUCENTIA, RHUFAB V2 [Suspect]
     Indication: CHOROIDAL NEOVASCULARISATION
     Dosage: 2.0 INTRAVITREAL INJ
     Dates: start: 20110706

REACTIONS (2)
  - CONDITION AGGRAVATED [None]
  - CARDIAC FAILURE CONGESTIVE [None]
